FAERS Safety Report 16653915 (Version 3)
Quarter: 2020Q2

REPORT INFORMATION
  Report Type: Spontaneous
  Country: US (occurrence: US)
  Receive Date: 20190731
  Receipt Date: 20200529
  Transmission Date: 20200713
  Serious: Yes (Other)
  Sender: FDA-Public Use
  Company Number: US-GILEAD-2019-0420352

PATIENT
  Age: 50 Year
  Sex: Male

DRUGS (53)
  1. ATRIPLA [Suspect]
     Active Substance: EFAVIRENZ\EMTRICITABINE\TENOFOVIR DISOPROXIL FUMARATE
     Dosage: 1 DOSAGE FORM, QD
     Route: 048
     Dates: start: 201304, end: 201907
  2. LIPITOR [Concomitant]
     Active Substance: ATORVASTATIN CALCIUM
  3. HYDROXYZINE [Concomitant]
     Active Substance: HYDROXYZINE HYDROCHLORIDE
  4. RTV [Concomitant]
  5. REGLAN [Concomitant]
     Active Substance: METOCLOPRAMIDE HYDROCHLORIDE
  6. KAYEXALATE [Concomitant]
     Active Substance: SODIUM POLYSTYRENE SULFONATE
  7. PROPECIA [Concomitant]
     Active Substance: FINASTERIDE
  8. SINGULAIR [Concomitant]
     Active Substance: MONTELUKAST SODIUM
  9. NUVIGIL [Concomitant]
     Active Substance: ARMODAFINIL
  10. TRICOR [ADENOSINE] [Concomitant]
     Active Substance: ADENOSINE
  11. TAMIFLU [Concomitant]
     Active Substance: OSELTAMIVIR PHOSPHATE
  12. CLINDAMYCIN. [Concomitant]
     Active Substance: CLINDAMYCIN
  13. ZOLOFT [Concomitant]
     Active Substance: SERTRALINE HYDROCHLORIDE
  14. AMLODIPINE BESYLATE. [Concomitant]
     Active Substance: AMLODIPINE BESYLATE
  15. IRON COMPOUND [Concomitant]
  16. TRILIPIX [Concomitant]
     Active Substance: FENOFIBRIC ACID
  17. PRAVASTATIN SODIUM. [Concomitant]
     Active Substance: PRAVASTATIN SODIUM
  18. RITALIN [Concomitant]
     Active Substance: METHYLPHENIDATE HYDROCHLORIDE
  19. AMOXICILLIN. [Concomitant]
     Active Substance: AMOXICILLIN
  20. MODAFINIL. [Concomitant]
     Active Substance: MODAFINIL
  21. TYLENOL WITH CODEINE [Concomitant]
     Active Substance: ACETAMINOPHEN\CODEINE PHOSPHATE
  22. FLUTICASONE. [Concomitant]
     Active Substance: FLUTICASONE
  23. ADIPEX [PHENTERMINE HYDROCHLORIDE] [Concomitant]
  24. 3TC [Concomitant]
     Active Substance: LAMIVUDINE
  25. COZAAR [Concomitant]
     Active Substance: LOSARTAN POTASSIUM
  26. ZOFRAN [Concomitant]
     Active Substance: ONDANSETRON HYDROCHLORIDE
  27. REYATAZ [Concomitant]
     Active Substance: ATAZANAVIR SULFATE
  28. SIMVASTATIN. [Concomitant]
     Active Substance: SIMVASTATIN
  29. TRUVADA [Suspect]
     Active Substance: EMTRICITABINE\TENOFOVIR DISOPROXIL FUMARATE
     Indication: HIV INFECTION
     Dosage: 1 DOSAGE FORM, QD
     Route: 065
     Dates: start: 200409, end: 20090118
  30. BIKTARVY [Concomitant]
     Active Substance: BICTEGRAVIR SODIUM\EMTRICITABINE\TENOFOVIR ALAFENAMIDE FUMARATE
  31. GEMFIBROZIL. [Concomitant]
     Active Substance: GEMFIBROZIL
  32. NORCO [Concomitant]
     Active Substance: ACETAMINOPHEN\HYDROCODONE BITARTRATE
  33. PRILOSEC [Concomitant]
     Active Substance: OMEPRAZOLE MAGNESIUM
  34. NORVASC [Concomitant]
     Active Substance: AMLODIPINE BESYLATE
  35. KETOCONAZOLE. [Concomitant]
     Active Substance: KETOCONAZOLE
  36. CLARITIN ALLERGY DECONGESTANT [Concomitant]
  37. BENAZEPRIL [Concomitant]
     Active Substance: BENAZEPRIL HYDROCHLORIDE
  38. TRUVADA [Suspect]
     Active Substance: EMTRICITABINE\TENOFOVIR DISOPROXIL FUMARATE
     Dosage: 1 DOSAGE FORM
     Route: 065
     Dates: start: 200907, end: 201303
  39. PATANASE [Concomitant]
     Active Substance: OLOPATADINE HYDROCHLORIDE
  40. HYDROCHLOROTHIAZIDE. [Concomitant]
     Active Substance: HYDROCHLOROTHIAZIDE
  41. ATV [Concomitant]
  42. COMPAZINE [PROCHLORPERAZINE EDISYLATE] [Concomitant]
     Active Substance: PROCHLORPERAZINE EDISYLATE
  43. SERTRALINE [Concomitant]
     Active Substance: SERTRALINE HYDROCHLORIDE
  44. CETIRIZINE [Concomitant]
     Active Substance: CETIRIZINE HYDROCHLORIDE
  45. TERBINAFINE. [Concomitant]
     Active Substance: TERBINAFINE
  46. ATRIPLA [Suspect]
     Active Substance: EFAVIRENZ\EMTRICITABINE\TENOFOVIR DISOPROXIL FUMARATE
     Indication: HIV INFECTION
     Dosage: 1 DOSAGE FORM, QD
     Route: 048
     Dates: start: 20090206
  47. PROVIGIL [CHORIONIC GONADOTROPHIN] [Concomitant]
     Active Substance: GONADOTROPHIN, CHORIONIC
  48. LEVAQUIN [Concomitant]
     Active Substance: LEVOFLOXACIN
  49. PHENTERMINE. [Concomitant]
     Active Substance: PHENTERMINE
  50. NASCOBAL [Concomitant]
     Active Substance: CYANOCOBALAMIN
  51. GLIPIZIDE. [Concomitant]
     Active Substance: GLIPIZIDE
  52. LANTUS [Concomitant]
     Active Substance: INSULIN GLARGINE
  53. METFORMIN [Concomitant]
     Active Substance: METFORMIN HYDROCHLORIDE

REACTIONS (12)
  - Pain [Unknown]
  - Anhedonia [Unknown]
  - Renal failure [Not Recovered/Not Resolved]
  - Emotional distress [Unknown]
  - Osteonecrosis [Not Recovered/Not Resolved]
  - Multiple fractures [Unknown]
  - Tooth loss [Not Recovered/Not Resolved]
  - Economic problem [Unknown]
  - Chronic kidney disease [Not Recovered/Not Resolved]
  - Bone loss [Not Recovered/Not Resolved]
  - Bone density decreased [Unknown]
  - Anxiety [Unknown]

NARRATIVE: CASE EVENT DATE: 200708
